FAERS Safety Report 6524938-4 (Version None)
Quarter: 2009Q4

REPORT INFORMATION
  Report Type: 
  Country: None (occurrence: None)
  Receive Date: 20091230
  Receipt Date: 20091230
  Transmission Date: 20100525
  Serious: No
  Sender: FDA-Public Use
  Company Number: None

PATIENT
  Age: 66 Year
  Sex: Female
  Weight: 72.5755 kg

DRUGS (4)
  1. COLD REMEDY ORAL MIST [Suspect]
     Indication: NASOPHARYNGITIS
     Dosage: QID FOR A FEW DAYS A FEW WEEKS AGO
  2. LIPITOR [Concomitant]
  3. LISINOPRIL [Concomitant]
  4. BYSTOLIC [Concomitant]

REACTIONS (1)
  - AGEUSIA [None]
